FAERS Safety Report 11602188 (Version 1)
Quarter: 2015Q4

REPORT INFORMATION
  Report Type: Spontaneous
  Country: US (occurrence: US)
  Receive Date: 20151006
  Receipt Date: 20151006
  Transmission Date: 20160304
  Serious: No
  Sender: FDA-Public Use
  Company Number: US-AMGEN-USASP2015039040

PATIENT
  Age: 82 Year
  Sex: Female

DRUGS (1)
  1. PROLIA [Suspect]
     Active Substance: DENOSUMAB
     Indication: PRODUCT USED FOR UNKNOWN INDICATION
     Route: 065
     Dates: start: 201502

REACTIONS (22)
  - Skin disorder [Unknown]
  - Mobility decreased [Unknown]
  - Tremor [Unknown]
  - Asthenia [Unknown]
  - Balance disorder [Unknown]
  - Blister [Unknown]
  - Paraesthesia [Unknown]
  - Eczema [Unknown]
  - Erythema [Unknown]
  - Malaise [Unknown]
  - Contusion [Unknown]
  - Hair growth abnormal [Unknown]
  - Gait disturbance [Unknown]
  - Spider vein [Unknown]
  - Speech disorder [Recovered/Resolved]
  - Feeling abnormal [Unknown]
  - Musculoskeletal chest pain [Unknown]
  - Skin discolouration [Unknown]
  - Hypoaesthesia [Unknown]
  - Scab [Unknown]
  - Muscle spasms [Unknown]
  - Arthralgia [Unknown]

NARRATIVE: CASE EVENT DATE: 2015
